FAERS Safety Report 8009583-6 (Version None)
Quarter: 2011Q4

REPORT INFORMATION
  Report Type: 
  Country: None (occurrence: None)
  Receive Date: 20111228
  Receipt Date: 20111221
  Transmission Date: 20120403
  Serious: Yes (Other)
  Sender: FDA-Public Use
  Company Number: US-BRISTOL-MYERS SQUIBB COMPANY-16308603

PATIENT

DRUGS (1)
  1. NULOJIX [Suspect]

REACTIONS (1)
  - RESPIRATORY DISORDER [None]
